FAERS Safety Report 10995013 (Version 1)
Quarter: 2015Q2

REPORT INFORMATION
  Report Type: Spontaneous
  Country: US (occurrence: US)
  Receive Date: 20150407
  Receipt Date: 20150407
  Transmission Date: 20150821
  Serious: Yes (Death, Other)
  Sender: FDA-Public Use
  Company Number: US-GLAXOSMITHKLINE-US2015GSK045516

PATIENT
  Age: 86 Day

DRUGS (1)
  1. ZOFRAN [Suspect]
     Active Substance: ONDANSETRON HYDROCHLORIDE
     Indication: GASTROENTERITIS VIRAL
     Dosage: UNK, U

REACTIONS (4)
  - Cardiac arrest [Fatal]
  - Heart rate increased [Unknown]
  - Off label use [Unknown]
  - Ventricular fibrillation [Fatal]
